FAERS Safety Report 7397241 (Version 5)
Quarter: 2015Q4

REPORT INFORMATION
  Report Type: Spontaneous
  Country: US (occurrence: US)
  Receive Date: 20100524
  Receipt Date: 20151123
  Transmission Date: 20160305
  Serious: Yes (Hospitalization, Other)
  Sender: FDA-Public Use
  Company Number: US-BAYER-201023019NA

PATIENT
  Age: 33 Year
  Sex: Female
  Weight: 81.63 kg

DRUGS (34)
  1. PROMETHAZINE [Concomitant]
     Active Substance: PROMETHAZINE\PROMETHAZINE HYDROCHLORIDE
  2. VERAPAMIL [Concomitant]
     Active Substance: VERAPAMIL HYDROCHLORIDE
  3. CLARITIN [Concomitant]
     Active Substance: LORATADINE
     Dosage: UNK
     Route: 048
     Dates: start: 200708
  4. VITAMIN D [COLECALCIFEROL] [Concomitant]
     Dosage: UNK
     Route: 048
     Dates: start: 2009
  5. TYLENOL PM [Concomitant]
     Active Substance: ACETAMINOPHEN\DIPHENHYDRAMINE
     Dosage: UNK
     Dates: start: 20090120
  6. UROCIT-K [Concomitant]
     Active Substance: POTASSIUM CITRATE
     Dosage: UNK
     Dates: start: 20090202
  7. DEPO-MEDROL [Concomitant]
     Active Substance: METHYLPREDNISOLONE ACETATE
     Dosage: 80 MG, UNK
     Dates: start: 20090202
  8. MARCAINE [Concomitant]
     Active Substance: BUPIVACAINE HYDROCHLORIDE
     Dosage: ? CC
     Dates: start: 20090202
  9. FLONASE [Concomitant]
     Active Substance: FLUTICASONE PROPIONATE
     Dosage: UNK
     Route: 045
     Dates: start: 200805, end: 200805
  10. VITAMIN B12 [Concomitant]
     Active Substance: CYANOCOBALAMIN
     Dosage: 1000 MCG/ML, Q 2 WEEKS
     Dates: start: 20090202
  11. ATIVAN [Concomitant]
     Active Substance: LORAZEPAM
     Indication: ANXIETY
     Dosage: 1 MG, PRN
     Route: 048
     Dates: start: 2009, end: 2009
  12. TIZANIDINE. [Concomitant]
     Active Substance: TIZANIDINE
     Dosage: 40 MG, OM
  13. DEPO-MEDROL [Concomitant]
     Active Substance: METHYLPREDNISOLONE ACETATE
     Dosage: 80 MG, UNK
     Dates: start: 20090403
  14. MORPHINE [Concomitant]
     Active Substance: MORPHINE
  15. PHENERGAN [Concomitant]
     Active Substance: PROMETHAZINE HYDROCHLORIDE
  16. YAZ [Suspect]
     Active Substance: DROSPIRENONE\ETHINYL ESTRADIOL
     Route: 048
     Dates: start: 2003, end: 20090715
  17. MAXALT-MLT [Concomitant]
     Active Substance: RIZATRIPTAN BENZOATE
  18. CYANOCOBALAMIN. [Concomitant]
     Active Substance: CYANOCOBALAMIN
     Dosage: 1000 MCG/ML, UNK
     Dates: start: 200903, end: 200903
  19. SINGULAIR [Concomitant]
     Active Substance: MONTELUKAST SODIUM
     Dosage: 10 MG, HS
     Route: 048
  20. CIPROFLOXACIN. [Concomitant]
     Active Substance: CIPROFLOXACIN
     Dosage: 20 TABLETS FOR 10 DAYS SUPPLY
  21. ADDERALL XR [Concomitant]
     Active Substance: AMPHETAMINE ASPARTATE\AMPHETAMINE SULFATE\DEXTROAMPHETAMINE SACCHARATE\DEXTROAMPHETAMINE SULFATE
  22. METFORMIN [Concomitant]
     Active Substance: METFORMIN HYDROCHLORIDE
     Dosage: 1500 MG, QD
     Route: 048
     Dates: start: 200701
  23. FIORICET [Concomitant]
     Active Substance: ACETAMINOPHEN\BUTALBITAL\CAFFEINE
  24. PHENERGAN [PROMETHAZINE] [Concomitant]
     Dosage: UNK
     Route: 048
     Dates: start: 200901, end: 200903
  25. ALBUTEROL. [Concomitant]
     Active Substance: ALBUTEROL
     Dosage: 90 MCG
     Dates: start: 20090202
  26. ZOFRAN [Concomitant]
     Active Substance: ONDANSETRON HYDROCHLORIDE
  27. TORADOL [Concomitant]
     Active Substance: KETOROLAC TROMETHAMINE
  28. POTASSIUM CITRATE/CITRIC ACID [Concomitant]
     Dosage: UNK
     Route: 048
     Dates: start: 200712
  29. KLONOPIN [Concomitant]
     Active Substance: CLONAZEPAM
     Dosage: 0.5 MG, UNK
     Dates: start: 200904, end: 200904
  30. ZANAFLEX [Concomitant]
     Active Substance: TIZANIDINE HYDROCHLORIDE
     Dosage: 4 MG, ? TO 1 Q 4-6 HOURS PRN
     Route: 048
     Dates: start: 20090202
  31. YASMIN [Suspect]
     Active Substance: DROSPIRENONE\ETHINYL ESTRADIOL
     Dosage: 1 DF, QD
     Dates: start: 2003, end: 200907
  32. PROVENTIL HFA [Concomitant]
     Active Substance: ALBUTEROL SULFATE
     Dosage: UNK
     Route: 055
     Dates: start: 2008, end: 2008
  33. MARCAINE [Concomitant]
     Active Substance: BUPIVACAINE HYDROCHLORIDE
     Dosage: ? CC
     Dates: start: 20090403
  34. LEXAPRO [Concomitant]
     Active Substance: ESCITALOPRAM OXALATE
     Dosage: 20 MG DAILY

REACTIONS (15)
  - Cerebrovascular accident [None]
  - Visual field defect [None]
  - Dysphagia [None]
  - Depression [None]
  - Hemiparesis [None]
  - Disorientation [None]
  - Paraplegia [None]
  - Transient ischaemic attack [None]
  - Depression [None]
  - Gait disturbance [None]
  - Aphasia [None]
  - Fatigue [None]
  - Asthenia [None]
  - Dysarthria [None]
  - Nerve injury [None]

NARRATIVE: CASE EVENT DATE: 20080930
